FAERS Safety Report 6636563-5 (Version None)
Quarter: 2010Q1

REPORT INFORMATION
  Report Type: 
  Country: None (occurrence: None)
  Receive Date: 20100310
  Receipt Date: 20100222
  Transmission Date: 20100710
  Serious: Yes (Hospitalization, Other)
  Sender: FDA-Public Use
  Company Number: AUR-APL-2010-00550

PATIENT
  Age: 42 Day
  Sex: Female
  Weight: 1.4 kg

DRUGS (2)
  1. ZIDOVUDINE [Suspect]
     Indication: HIV INFECTION
     Dosage: 500MG-TRANSPLACENT
  2. ZIDOVUDINE [Suspect]
     Indication: PROPHYLAXIS AGAINST HIV INFECTION
     Dosage: 2MG/KG/DOSE-ORAL
     Route: 048

REACTIONS (12)
  - ALANINE AMINOTRANSFERASE INCREASED [None]
  - ASPARTATE AMINOTRANSFERASE INCREASED [None]
  - ATRIAL SEPTAL DEFECT [None]
  - BLOOD ALKALINE PHOSPHATASE INCREASED [None]
  - BLOOD BILIRUBIN INCREASED [None]
  - DEHYDRATION [None]
  - DIARRHOEA NEONATAL [None]
  - MATERNAL DRUGS AFFECTING FOETUS [None]
  - METABOLIC ACIDOSIS [None]
  - NEONATAL ASPIRATION [None]
  - SMALL FOR DATES BABY [None]
  - VENTRICULAR SEPTAL DEFECT [None]
